FAERS Safety Report 9262909 (Version 1)
Quarter: 2013Q2

REPORT INFORMATION
  Report Type: Spontaneous
  Country: JP (occurrence: None)
  Receive Date: 20130426
  Receipt Date: 20130426
  Transmission Date: 20140414
  Serious: Yes (Hospitalization)
  Sender: FDA-Public Use
  Company Number: FK201301288

PATIENT
  Age: 33 Year
  Sex: Female

DRUGS (3)
  1. CISPLATIN [Suspect]
     Indication: OVARIAN GERM CELL CANCER
     Dosage: ON DAYS 1-5
  2. BLEOMYCIN [Suspect]
     Indication: OVARIAN GERM CELL CANCER
  3. ETOPOSIDE (ETOPOSIDE) [Concomitant]

REACTIONS (9)
  - Embolism [None]
  - Incontinence [None]
  - Muscular weakness [None]
  - Dyspnoea exertional [None]
  - Hemiplegia [None]
  - VIIth nerve paralysis [None]
  - Cerebral infarction [None]
  - Deep vein thrombosis [None]
  - Pulmonary embolism [None]
